FAERS Safety Report 9183889 (Version 1)
Quarter: 2012Q4

REPORT INFORMATION
  Report Type: Report from Study
  Country: US (occurrence: US)
  Receive Date: 20121101
  Receipt Date: 20121101
  Transmission Date: 20130627
  Serious: Yes (Other)
  Sender: FDA-Public Use
  Company Number: US-PFIZER INC-2012268218

PATIENT
  Age: 62 Year
  Sex: Female

DRUGS (6)
  1. LIPITOR [Suspect]
     Dosage: UNK
     Dates: end: 201012
  2. HUMIRA [Suspect]
     Indication: PSORIATIC ARTHRITIS
     Dosage: 40 mg, UNK
     Dates: start: 2008
  3. HUMIRA [Suspect]
     Indication: PSORIATIC ARTHRITIS
     Dosage: 40 mg, UNK
     Dates: end: 201012
  4. NIASPAN [Suspect]
     Dosage: UNK
     Dates: end: 201012
  5. PLAQUENIL [Suspect]
     Dosage: UNK
     Dates: end: 201112
  6. PLAQUENIL [Suspect]
     Dosage: UNK
     Dates: start: 201104

REACTIONS (10)
  - Spinal disorder [Unknown]
  - Intervertebral disc protrusion [Unknown]
  - Muscular weakness [Unknown]
  - Dysstasia [Unknown]
  - Gait disturbance [Unknown]
  - Pelvic pain [Unknown]
  - Back pain [Unknown]
  - Sjogren^s syndrome [Unknown]
  - Weight decreased [Recovered/Resolved]
  - Injection site bruising [Recovered/Resolved]
